FAERS Safety Report 25353047 (Version 1)
Quarter: 2025Q2

REPORT INFORMATION
  Report Type: Spontaneous
  Country: CN (occurrence: CN)
  Receive Date: 20250523
  Receipt Date: 20250523
  Transmission Date: 20250717
  Serious: Yes (Other)
  Sender: ELI LILLY AND COMPANY
  Company Number: CN-Merck Healthcare KGaA-2025024197

PATIENT
  Age: 56 Year
  Sex: Female
  Weight: 43 kg

DRUGS (9)
  1. ERBITUX [Suspect]
     Active Substance: CETUXIMAB
     Indication: Colon cancer metastatic
     Route: 041
     Dates: start: 20250420, end: 20250420
  2. ERBITUX [Suspect]
     Active Substance: CETUXIMAB
     Route: 041
     Dates: start: 20250420, end: 20250420
  3. IRINOTECAN HYDROCHLORIDE [Suspect]
     Active Substance: IRINOTECAN HYDROCHLORIDE
     Indication: Colon cancer metastatic
     Route: 041
     Dates: start: 20250420, end: 20250420
  4. LEUCOVORIN CALCIUM [Suspect]
     Active Substance: LEUCOVORIN CALCIUM
     Indication: Colon cancer metastatic
     Route: 041
     Dates: start: 20250420, end: 20250420
  5. FLUOROURACIL [Suspect]
     Active Substance: FLUOROURACIL
     Indication: Colon cancer metastatic
     Route: 041
     Dates: start: 20250420, end: 20250420
  6. FLUOROURACIL [Suspect]
     Active Substance: FLUOROURACIL
     Route: 042
     Dates: start: 20250420, end: 20250420
  7. SODIUM CHLORIDE [Concomitant]
     Active Substance: SODIUM CHLORIDE
     Indication: Medication dilution
     Route: 041
     Dates: start: 20250420, end: 20250420
  8. SODIUM CHLORIDE [Concomitant]
     Active Substance: SODIUM CHLORIDE
     Route: 041
     Dates: start: 20250420, end: 20250420
  9. SODIUM CHLORIDE [Concomitant]
     Active Substance: SODIUM CHLORIDE
     Route: 041
     Dates: start: 20250420, end: 20250420

REACTIONS (2)
  - White blood cell count decreased [Unknown]
  - Granulocyte count decreased [Unknown]

NARRATIVE: CASE EVENT DATE: 20250513
